FAERS Safety Report 21852189 (Version 1)
Quarter: 2023Q1

REPORT INFORMATION
  Report Type: Spontaneous
  Country: US (occurrence: US)
  Receive Date: 20230112
  Receipt Date: 20230112
  Transmission Date: 20230417
  Serious: Yes (Other)
  Sender: FDA-Public Use
  Company Number: US-SA-SAC20230111001005

PATIENT
  Sex: Female

DRUGS (2)
  1. DUPIXENT [Suspect]
     Active Substance: DUPILUMAB
     Indication: Dermatitis atopic
     Dosage: 300 MG, QOW
     Route: 058
     Dates: start: 202009
  2. RINVOQ [Concomitant]
     Active Substance: UPADACITINIB
     Dosage: UNK

REACTIONS (9)
  - Pneumonia [Unknown]
  - Cough [Unknown]
  - Chest discomfort [Unknown]
  - White blood cell count increased [Unknown]
  - Skin exfoliation [Unknown]
  - Condition aggravated [Unknown]
  - Erythema [Unknown]
  - Condition aggravated [Unknown]
  - Pruritus [Unknown]
